FAERS Safety Report 6858021-5 (Version None)
Quarter: 2010Q2

REPORT INFORMATION
  Report Type: 
  Country: None (occurrence: None)
  Receive Date: 20100526
  Receipt Date: 20090406
  Transmission Date: 20101027
  Serious: Yes (Other)
  Sender: FDA-Public Use
  Company Number: 283698

PATIENT
  Age: 69 Year
  Sex: Female
  Weight: 50.8 kg

DRUGS (8)
  1. ACTIVELLA [Suspect]
     Indication: HORMONE THERAPY
     Dosage: 0.05 MG
     Dates: start: 20010101, end: 20030101
  2. PROVERA [Suspect]
     Indication: HORMONE THERAPY
     Dosage: 2.5 MG, ORAL
     Route: 048
     Dates: start: 19890101, end: 20010101
  3. OGEN [Suspect]
     Indication: HORMONE THERAPY
     Dosage: 0.625 MG
     Dates: start: 19910101, end: 20010101
  4. ESTRADIOL [Concomitant]
  5. ETHINYL ESTRADIOL TAB [Concomitant]
  6. THYROLAR (LEVOTHYROXINE SODIUM, LIOTHYRONINE SODIUM) [Concomitant]
  7. CALAN [Concomitant]
  8. ACTONEL [Concomitant]

REACTIONS (1)
  - BREAST CANCER IN SITU [None]
